FAERS Safety Report 23799758 (Version 2)
Quarter: 2024Q2

REPORT INFORMATION
  Report Type: Report from Study
  Country: US (occurrence: US)
  Receive Date: 20240430
  Receipt Date: 20240524
  Transmission Date: 20240715
  Serious: Yes (Other)
  Sender: FDA-Public Use
  Company Number: US-AstraZeneca-CH-00612559A

PATIENT
  Age: 46 Year
  Sex: Female

DRUGS (1)
  1. STRENSIQ [Suspect]
     Active Substance: ASFOTASE ALFA
     Indication: Product used for unknown indication
     Dosage: UNK
     Route: 058
     Dates: start: 202001

REACTIONS (2)
  - Arteriosclerosis coronary artery [Unknown]
  - Cardiac stress test abnormal [Not Recovered/Not Resolved]

NARRATIVE: CASE EVENT DATE: 20240422
